FAERS Safety Report 5824736-0 (Version None)
Quarter: 2008Q3

REPORT INFORMATION
  Report Type: 
  Country: None (occurrence: None)
  Receive Date: 20080722
  Receipt Date: 20080714
  Transmission Date: 20090109
  Serious: Yes (Other)
  Sender: FDA-Public Use
  Company Number: 2008BI009471

PATIENT
  Age: 43 Year
  Sex: Female

DRUGS (10)
  1. TYSABRI [Suspect]
     Indication: MULTIPLE SCLEROSIS
     Dosage: 300 MG;QM;IV
     Route: 042
     Dates: start: 20061030
  2. FLUOXETINE HYDROCHLORIDE [Concomitant]
  3. GABITRIL [Concomitant]
  4. PROVIGIL [Concomitant]
  5. LYRICA [Concomitant]
  6. ROZEREM [Concomitant]
  7. BONIVA [Concomitant]
  8. DURAGESIC-100 [Concomitant]
  9. MORPHINE SULFATE [Concomitant]
  10. DIAZEPAM [Concomitant]

REACTIONS (1)
  - BREAST CANCER FEMALE [None]
